FAERS Safety Report 4442450-3 (Version None)
Quarter: 2004Q3

REPORT INFORMATION
  Report Type: 
  Country: None (occurrence: None)
  Receive Date: 20040903
  Receipt Date: 20040729
  Transmission Date: 20050211
  Serious: Yes (Other)
  Sender: FDA-Public Use
  Company Number: 2004UW16158

PATIENT
  Sex: Female

DRUGS (1)
  1. CRESTOR [Suspect]
     Dosage: 10 MG  PO
     Route: 048
     Dates: start: 20040101

REACTIONS (4)
  - APHTHOUS STOMATITIS [None]
  - DRY MOUTH [None]
  - OEDEMA PERIPHERAL [None]
  - SENSATION OF HEAVINESS [None]
